FAERS Safety Report 25337036 (Version 1)
Quarter: 2025Q2

REPORT INFORMATION
  Report Type: Spontaneous
  Country: US (occurrence: US)
  Receive Date: 20250520
  Receipt Date: 20250520
  Transmission Date: 20250716
  Serious: Yes (Other)
  Sender: OTSUKA
  Company Number: US-MMM-Otsuka-RBA5V3XT

PATIENT
  Sex: Female

DRUGS (1)
  1. SAMSCA [Suspect]
     Active Substance: TOLVAPTAN
     Indication: Hyponatraemia
     Dosage: 0.5 DF, BIW (ONE HALF OF A 30 MG TABLET (15 MG) EVERY MONDAY AND THURSDAY)
     Route: 048

REACTIONS (6)
  - Seizure [Not Recovered/Not Resolved]
  - Therapy interrupted [Unknown]
  - Off label use [Unknown]
  - Wrong technique in product usage process [Unknown]
  - Insurance issue [Unknown]
  - Product use issue [Unknown]
